FAERS Safety Report 12625934 (Version 1)
Quarter: 2016Q3

REPORT INFORMATION
  Report Type: Spontaneous
  Country: US (occurrence: US)
  Receive Date: 20160805
  Receipt Date: 20160805
  Transmission Date: 20161109
  Serious: No
  Sender: FDA-Public Use
  Company Number: US-ABBVIE-16P-163-1544026-00

PATIENT
  Age: 36 Year
  Sex: Female

DRUGS (2)
  1. MODERIBA [Suspect]
     Active Substance: RIBAVIRIN
     Indication: CHRONIC HEPATITIS C
     Dosage: 600MG 600MG
     Route: 048
     Dates: start: 20160114, end: 20160115
  2. VIEKIRA PAK [Suspect]
     Active Substance: DASABUVIR\OMBITASVIR\PARITAPREVIR\RITONAVIR
     Indication: CHRONIC HEPATITIS C
     Route: 048
     Dates: start: 20160114, end: 20160115

REACTIONS (4)
  - Pruritus generalised [Recovering/Resolving]
  - Swelling face [Recovering/Resolving]
  - Ear swelling [Recovering/Resolving]
  - Miliaria [Recovered/Resolved]

NARRATIVE: CASE EVENT DATE: 20160115
